FAERS Safety Report 9900298 (Version 1)
Quarter: 2014Q1

REPORT INFORMATION
  Report Type: Report from Study
  Country: US (occurrence: US)
  Receive Date: 20140216
  Receipt Date: 20140216
  Transmission Date: 20141002
  Serious: No
  Sender: FDA-Public Use
  Company Number: US-009507513-1402USA006832

PATIENT
  Sex: Female
  Weight: 95.24 kg

DRUGS (1)
  1. IMPLANON [Suspect]
     Dosage: UNK
     Route: 059
     Dates: start: 20130313, end: 20140212

REACTIONS (1)
  - Menstruation irregular [Unknown]
